FAERS Safety Report 7604260-5 (Version None)
Quarter: 2011Q3

REPORT INFORMATION
  Report Type: 
  Country: None (occurrence: None)
  Receive Date: 20110712
  Receipt Date: 20110708
  Transmission Date: 20111222
  Serious: Yes (Other)
  Sender: FDA-Public Use
  Company Number: TR-ROXANE LABORATORIES, INC.-2011-RO-00964RO

PATIENT
  Age: 26 Year
  Sex: Male

DRUGS (5)
  1. ATROPINE [Suspect]
     Indication: PREMEDICATION
  2. EPINEPHRINE [Suspect]
     Indication: LOCAL ANAESTHESIA
  3. PHENOBARBITAL TAB [Suspect]
     Indication: PREMEDICATION
     Dosage: 200 MG
  4. DIAZEPAM [Suspect]
     Indication: PREMEDICATION
     Dosage: 10 MG
  5. LIDOCAINE [Suspect]
     Indication: LOCAL ANAESTHESIA

REACTIONS (3)
  - MYDRIASIS [None]
  - EYE IRRITATION [None]
  - VISION BLURRED [None]
